FAERS Safety Report 4753774-4 (Version None)
Quarter: 2005Q3

REPORT INFORMATION
  Report Type: 
  Country: None (occurrence: None)
  Receive Date: 20050825
  Receipt Date: 20050807
  Transmission Date: 20060218
  Serious: Yes (Other)
  Sender: FDA-Public Use
  Company Number: CIO05013565

PATIENT
  Sex: Female

DRUGS (1)
  1. CREST WHITENING EXPRESSIONS, (SODIUM FLUORIDE .243%, SODIUM ACID PYROP [Suspect]
     Dosage: 1 APPLIC, 1 ONLY FOR 1 DAY, INTRAORAL
     Route: 048
     Dates: start: 20050807, end: 20050807

REACTIONS (4)
  - DYSPHAGIA [None]
  - ORAL PAIN [None]
  - SPEECH DISORDER [None]
  - SWOLLEN TONGUE [None]
